FAERS Safety Report 24683914 (Version 1)
Quarter: 2024Q4

REPORT INFORMATION
  Report Type: Spontaneous
  Country: US (occurrence: US)
  Receive Date: 20241202
  Receipt Date: 20241202
  Transmission Date: 20250114
  Serious: No
  Sender: RANBAXY
  Company Number: US-SUN PHARMACEUTICAL INDUSTRIES LTD-2024R1-428110

PATIENT
  Sex: Female

DRUGS (1)
  1. DOFETILIDE [Suspect]
     Active Substance: DOFETILIDE
     Indication: Product used for unknown indication
     Dosage: 250 MICROGRAM, BID
     Route: 048

REACTIONS (2)
  - Poor quality product administered [Unknown]
  - Product quality issue [Unknown]
